FAERS Safety Report 17941355 (Version 1)
Quarter: 2020Q2

REPORT INFORMATION
  Report Type: Spontaneous
  Country: US (occurrence: US)
  Receive Date: 20200624
  Receipt Date: 20200624
  Transmission Date: 20200714
  Serious: Yes (Hospitalization)
  Sender: FDA-Public Use
  Company Number: None

PATIENT
  Age: 13 Year
  Sex: Male
  Weight: 38.25 kg

DRUGS (1)
  1. GUANFACINE 2MG TAKE 1 TABLET BY MOUTH AT BEDTIME [Suspect]
     Active Substance: GUANFACINE
     Indication: DRUG THERAPY
     Dosage: ?          QUANTITY:1 TABLET(S);?
     Route: 048
     Dates: start: 20200123, end: 20200123

REACTIONS (4)
  - Vomiting [None]
  - Altered state of consciousness [None]
  - Disorientation [None]
  - Somnolence [None]

NARRATIVE: CASE EVENT DATE: 20200123
